FAERS Safety Report 20519035 (Version 1)
Quarter: 2022Q1

REPORT INFORMATION
  Report Type: Spontaneous
  Country: FR (occurrence: FR)
  Receive Date: 20220225
  Receipt Date: 20220225
  Transmission Date: 20220423
  Serious: Yes (Other)
  Sender: FDA-Public Use
  Company Number: FR-ALXN-A202202529

PATIENT
  Sex: Male

DRUGS (3)
  1. SOLIRIS [Suspect]
     Active Substance: ECULIZUMAB
     Dosage: 600 MG
  2. SOLIRIS [Suspect]
     Active Substance: ECULIZUMAB
     Dosage: 900.0 MG , Q2W
     Route: 065
  3. SOLIRIS [Suspect]
     Active Substance: ECULIZUMAB
     Indication: Product used for unknown indication
     Dosage: 900 MG

REACTIONS (3)
  - Diverticulitis [Recovered/Resolved]
  - Haemolysis [Recovered/Resolved]
  - Haemoglobin decreased [Unknown]
